FAERS Safety Report 6512322-9 (Version None)
Quarter: 2009Q4

REPORT INFORMATION
  Report Type: 
  Country: None (occurrence: None)
  Receive Date: 20091222
  Receipt Date: 20090629
  Transmission Date: 20100525
  Serious: No
  Sender: FDA-Public Use
  Company Number: US-ASTRAZENECA-2009UW18239

PATIENT
  Age: 76 Year
  Sex: Female
  Weight: 63 kg

DRUGS (8)
  1. CRESTOR [Suspect]
     Route: 048
     Dates: start: 20090101
  2. METOPROLOL SUCCINATE [Concomitant]
  3. OMEPRAZOLE [Concomitant]
     Indication: GASTROOESOPHAGEAL REFLUX DISEASE
  4. TRIAMTERENE AND HYDROCHLOROTHIAZIDE [Concomitant]
  5. FEXOPHENADINE [Concomitant]
  6. METFORMIN HCL [Concomitant]
  7. AMLODIPINE [Concomitant]
     Indication: BLOOD PRESSURE
  8. TERBINAFINE HCL [Concomitant]
     Indication: FUNGAL SKIN INFECTION

REACTIONS (1)
  - PAIN IN EXTREMITY [None]
